FAERS Safety Report 17900464 (Version 1)
Quarter: 2020Q2

REPORT INFORMATION
  Report Type: Spontaneous
  Country: US (occurrence: US)
  Receive Date: 20200615
  Receipt Date: 20200615
  Transmission Date: 20200714
  Serious: Yes (Death)
  Sender: FDA-Public Use
  Company Number: None

PATIENT
  Age: 65 Year
  Sex: Female
  Weight: 55 kg

DRUGS (3)
  1. ECULIZUMAB [Concomitant]
     Active Substance: ECULIZUMAB
     Dates: start: 20200526, end: 20200530
  2. METHYLPREDISONE [Concomitant]
     Active Substance: METHYLPREDNISOLONE
     Dates: start: 20200521, end: 20200530
  3. REMDESIVIR. [Suspect]
     Active Substance: REMDESIVIR
     Indication: COVID-19
     Route: 041
     Dates: start: 20200519, end: 20200523

REACTIONS (1)
  - Death [None]

NARRATIVE: CASE EVENT DATE: 20200530
